FAERS Safety Report 7008535-2 (Version None)
Quarter: 2010Q3

REPORT INFORMATION
  Report Type: 
  Country: None (occurrence: None)
  Receive Date: 20100922
  Receipt Date: 20100830
  Transmission Date: 20110219
  Serious: No
  Sender: FDA-Public Use
  Company Number: US-PFIZER INC-2010099351

PATIENT
  Sex: Female
  Weight: 90.703 kg

DRUGS (2)
  1. ESTRING [Suspect]
     Indication: MENOPAUSAL SYMPTOMS
     Dosage: 2 MG, UNK
     Route: 067
     Dates: start: 20090101
  2. ESTRING [Suspect]
     Indication: ATROPHIC VULVOVAGINITIS
     Dosage: UNK, EVERY 3 MONTHS
     Route: 067
     Dates: start: 20100610, end: 20100802

REACTIONS (2)
  - DRUG INEFFECTIVE [None]
  - DYSPAREUNIA [None]
